FAERS Safety Report 8660420 (Version 2)
Quarter: 2012Q4

REPORT INFORMATION
  Report Type: 
  Country: JP (occurrence: JP)
  Receive Date: 20120711
  Receipt Date: 20121009
  Transmission Date: 20130627
  Serious: Yes (Hospitalization)
  Sender: FDA-Public Use
  Company Number: JP-JNJFOC-20120609372

PATIENT
  Age: 41 Year
  Sex: Male
  Weight: 114 kg

DRUGS (5)
  1. REMICADE [Suspect]
     Indication: RHEUMATOID ARTHRITIS
     Route: 042
  2. REMICADE [Suspect]
     Indication: RHEUMATOID ARTHRITIS
     Route: 042
     Dates: start: 20120604
  3. METHOTREXATE [Suspect]
     Indication: SAPHO SYNDROME
     Route: 048
  4. METHOTREXATE [Suspect]
     Indication: RHEUMATOID ARTHRITIS
     Route: 048
  5. AZULFIDINE [Suspect]
     Indication: SAPHO SYNDROME
     Route: 048

REACTIONS (1)
  - Infectious pleural effusion [Recovering/Resolving]
